FAERS Safety Report 6761790-6 (Version None)
Quarter: 2010Q2

REPORT INFORMATION
  Report Type: 
  Country: None (occurrence: None)
  Receive Date: 20100609
  Receipt Date: 20100607
  Transmission Date: 20101027
  Serious: Yes (Hospitalization, Disabling, Other)
  Sender: FDA-Public Use
  Company Number: US-BAYER-201012807NA

PATIENT
  Age: 50 Year
  Sex: Female

DRUGS (3)
  1. BETASERON [Suspect]
     Indication: RELAPSING-REMITTING MULTIPLE SCLEROSIS
     Dosage: TOTAL DAILY DOSE: 4 MIU
     Route: 058
     Dates: start: 20100114, end: 20100131
  2. BETASERON [Suspect]
     Dosage: TOTAL DAILY DOSE: 2 MIU
     Route: 058
     Dates: start: 20100201, end: 20100322
  3. BETASERON [Suspect]
     Dosage: TOTAL DAILY DOSE: 4 MIU
     Route: 058
     Dates: start: 20100415, end: 20100601

REACTIONS (10)
  - ABDOMINAL PAIN UPPER [None]
  - CHILLS [None]
  - CONVULSION [None]
  - CRYING [None]
  - FATIGUE [None]
  - HEADACHE [None]
  - PAIN [None]
  - PRURITUS [None]
  - QUADRIPLEGIA [None]
  - SURGERY [None]
